FAERS Safety Report 5044193-4 (Version None)
Quarter: 2006Q3

REPORT INFORMATION
  Report Type: 
  Country: None (occurrence: None)
  Receive Date: 20060706
  Receipt Date: 20060531
  Transmission Date: 20061208
  Serious: Yes (Other)
  Sender: FDA-Public Use
  Company Number: CA-ROCHE-451031

PATIENT
  Age: 21 Year
  Sex: Male
  Weight: 65.8 kg

DRUGS (1)
  1. ACCUTANE [Suspect]
     Indication: ACNE
     Route: 048
     Dates: start: 20050913, end: 20060415

REACTIONS (1)
  - GINGIVAL RECESSION [None]
